FAERS Safety Report 4337415-6 (Version None)
Quarter: 2004Q2

REPORT INFORMATION
  Report Type: 
  Country: None (occurrence: None)
  Receive Date: 20040408
  Receipt Date: 20040329
  Transmission Date: 20050107
  Serious: Yes (Hospitalization)
  Sender: FDA-Public Use
  Company Number: AU-JNJFOC-20040306293

PATIENT
  Age: 40 Year
  Sex: Male

DRUGS (1)
  1. REMICADE [Suspect]
     Indication: CROHN'S DISEASE
     Dosage: THE INFUSION WAS STOPPED AFTER 30-45 MINUTES

REACTIONS (3)
  - ANXIETY [None]
  - CHEST DISCOMFORT [None]
  - RASH GENERALISED [None]
